FAERS Safety Report 4993973-X (Version None)
Quarter: 2006Q2

REPORT INFORMATION
  Report Type: 
  Country: None (occurrence: None)
  Receive Date: 20060505
  Receipt Date: 20060424
  Transmission Date: 20061013
  Serious: Yes (Life-Threatening, Hospitalization, Disabling, Other)
  Sender: FDA-Public Use
  Company Number: IL-GLAXOSMITHKLINE-B0421998A

PATIENT
  Age: 44 Year
  Sex: Female
  Weight: 80 kg

DRUGS (1)
  1. ALKERAN [Suspect]
     Indication: MALIGNANT MELANOMA
     Route: 065

REACTIONS (10)
  - AMPUTATION [None]
  - BLISTER [None]
  - BONE MARROW FAILURE [None]
  - CYANOSIS [None]
  - HAEMATOMA [None]
  - LEG AMPUTATION [None]
  - NECROSIS [None]
  - OEDEMA [None]
  - RENAL FAILURE [None]
  - RHABDOMYOLYSIS [None]
